FAERS Safety Report 11638735 (Version 4)
Quarter: 2015Q4

REPORT INFORMATION
  Report Type: Report from Study
  Country: RO (occurrence: RO)
  Receive Date: 20151016
  Receipt Date: 20151102
  Transmission Date: 20160304
  Serious: Yes (Other)
  Sender: FDA-Public Use
  Company Number: RO-ABBVIE-15P-135-1483117-00

PATIENT
  Age: 71 Year
  Sex: Male

DRUGS (5)
  1. BILOMAG FORTE [Concomitant]
     Indication: PRODUCT USED FOR UNKNOWN INDICATION
  2. FOLIC ACID. [Concomitant]
     Active Substance: FOLIC ACID
     Indication: PRODUCT USED FOR UNKNOWN INDICATION
  3. CETEBE [Concomitant]
     Indication: PRODUCT USED FOR UNKNOWN INDICATION
  4. DUODOPA [Suspect]
     Active Substance: CARBIDOPA\LEVODOPA
     Indication: PARKINSON^S DISEASE
     Dosage: 24/24 H, MD 3.2 ML, CR 5.6 ML/H, ED 6 ML
     Route: 065
     Dates: start: 2012, end: 20151026
  5. MILGAMMA [Concomitant]
     Active Substance: VITAMIN B
     Indication: PRODUCT USED FOR UNKNOWN INDICATION

REACTIONS (5)
  - Dementia [Unknown]
  - Self-injurious ideation [Unknown]
  - Device issue [Unknown]
  - Incorrect route of drug administration [Unknown]
  - Intentional device misuse [Unknown]

NARRATIVE: CASE EVENT DATE: 201510
